FAERS Safety Report 5228795-8 (Version None)
Quarter: 2007Q1

REPORT INFORMATION
  Report Type: 
  Country: None (occurrence: None)
  Receive Date: 20070205
  Receipt Date: 20070123
  Transmission Date: 20070707
  Serious: Yes (Death)
  Sender: FDA-Public Use
  Company Number: DE-MERCK-0701DEU00095

PATIENT
  Sex: Male

DRUGS (9)
  1. PRIMAXIN [Suspect]
     Indication: PSEUDOMONAL SEPSIS
     Route: 051
  2. CANCIDAS [Concomitant]
     Indication: CANDIDIASIS
     Route: 042
  3. CANCIDAS [Concomitant]
     Route: 042
  4. CORTICOSTEROIDS (UNSPECIFIED) [Concomitant]
     Route: 065
  5. CELLCEPT [Concomitant]
     Route: 065
  6. PROGRAF [Concomitant]
     Route: 048
  7. COLISTIN [Concomitant]
     Route: 065
  8. TOBRAMYCIN [Concomitant]
     Route: 065
  9. AMPHOTERICIN B [Concomitant]
     Route: 065

REACTIONS (4)
  - ACUTE HEPATIC FAILURE [None]
  - RENAL FAILURE ACUTE [None]
  - SEPSIS [None]
  - SHOCK [None]
